FAERS Safety Report 8135518-1 (Version None)
Quarter: 2012Q1

REPORT INFORMATION
  Report Type: 
  Country: None (occurrence: None)
  Receive Date: 20120214
  Receipt Date: 20120207
  Transmission Date: 20120608
  Serious: Yes (Disabling, Other)
  Sender: FDA-Public Use
  Company Number: CA-JNJFOC-20120205817

PATIENT
  Age: 44 Year
  Sex: Male

DRUGS (9)
  1. ITRACONAZOLE [Suspect]
     Indication: SPOROTRICHOSIS
     Route: 042
  2. RITUXIMAB [Concomitant]
     Indication: HAIRY CELL LEUKAEMIA
     Route: 065
  3. AMPHOTERICIN B [Concomitant]
     Route: 065
  4. RITUXIMAB [Concomitant]
     Route: 065
  5. RITUXIMAB [Concomitant]
     Route: 065
  6. AMPHOTERICIN B [Concomitant]
     Route: 065
  7. AMPHOTERICIN B [Concomitant]
     Indication: SPOROTRICHOSIS
     Route: 065
  8. RITUXIMAB [Concomitant]
     Route: 065
  9. PROTON PUMP INHIBITOR [Concomitant]
     Indication: PRODUCT USED FOR UNKNOWN INDICATION
     Route: 065

REACTIONS (5)
  - FUNGAL SKIN INFECTION [None]
  - PYREXIA [None]
  - GASTROINTESTINAL DISORDER [None]
  - CONJUNCTIVITIS [None]
  - ENDOPHTHALMITIS [None]
